FAERS Safety Report 9438195 (Version 1)
Quarter: 2013Q3

REPORT INFORMATION
  Report Type: Spontaneous
  Country: US (occurrence: US)
  Receive Date: 20130802
  Receipt Date: 20130802
  Transmission Date: 20140515
  Serious: No
  Sender: FDA-Public Use
  Company Number: US-BRISTOL-MYERS SQUIBB COMPANY-17047259

PATIENT
  Age: 35 Year
  Sex: Female
  Weight: 63.49 kg

DRUGS (1)
  1. COUMADIN [Suspect]
     Dosage: 28SEP12: CHANGED TO 8 MG,5 MG ON TUESDAY AND FRIDAY
     Dates: start: 20120926

REACTIONS (1)
  - Exposure during breast feeding [Unknown]
